FAERS Safety Report 6791058-3 (Version None)
Quarter: 2010Q2

REPORT INFORMATION
  Report Type: 
  Country: None (occurrence: None)
  Receive Date: 20100624
  Receipt Date: 20100616
  Transmission Date: 20101027
  Serious: Yes (Hospitalization)
  Sender: FDA-Public Use
  Company Number: JP-BRISTOL-MYERS SQUIBB COMPANY-15159833

PATIENT
  Age: 79 Year
  Sex: Female

DRUGS (1)
  1. HYDREA [Suspect]
     Indication: ESSENTIAL THROMBOCYTHAEMIA
     Dosage: ALSO TAKEN ON OCT2009
     Route: 048
     Dates: start: 20090801

REACTIONS (1)
  - OVERGROWTH BACTERIAL [None]
